FAERS Safety Report 14938478 (Version 2)
Quarter: 2018Q3

REPORT INFORMATION
  Report Type: Report from Study
  Country: US (occurrence: MX)
  Receive Date: 20180525
  Receipt Date: 20180717
  Transmission Date: 20181010
  Serious: Yes (Hospitalization, Other)
  Sender: FDA-Public Use
  Company Number: US-SUNOVION-2018SUN002091

PATIENT
  Sex: Female
  Weight: 80 kg

DRUGS (13)
  1. MIFLONIDE [Suspect]
     Active Substance: BUDESONIDE
     Dosage: 600 MG, QD REGIMEN #3
     Route: 055
  2. XARELTO [Suspect]
     Active Substance: RIVAROXABAN
     Indication: ANTICOAGULANT THERAPY
     Dosage: 1 DF, QD
     Route: 065
  3. EUTIROX [Concomitant]
     Active Substance: LEVOTHYROXINE SODIUM
  4. MIFLONIDE [Suspect]
     Active Substance: BUDESONIDE
     Indication: ASTHMA
     Dosage: 200 ?G, QD REGIMEN #1
     Route: 055
  5. MIFLONIDE [Suspect]
     Active Substance: BUDESONIDE
     Dosage: 400 UG, QD
     Route: 055
     Dates: start: 2017
  6. INDACATEROL [Suspect]
     Active Substance: INDACATEROL
     Indication: ASTHMA
     Dosage: 1 DF, HS
     Route: 055
  7. MIFLONIDE [Suspect]
     Active Substance: BUDESONIDE
     Dosage: 400 ?G, QD  REGIMEN #2
     Route: 055
  8. ELIQUIS [Concomitant]
     Active Substance: APIXABAN
     Dosage: 0.5 MG, UNK
     Route: 065
  9. MIFLONIDE [Suspect]
     Active Substance: BUDESONIDE
     Dosage: 200 UG, QD (EVERY 24 HOURS)
     Route: 055
  10. MIFLONIDE [Suspect]
     Active Substance: BUDESONIDE
     Dosage: 600 UG, QD
     Route: 055
  11. XARELTO [Suspect]
     Active Substance: RIVAROXABAN
     Dosage: 200 MG (1 DF)
     Route: 065
  12. COMBIVENT [Concomitant]
     Active Substance: ALBUTEROL SULFATE\IPRATROPIUM BROMIDE
     Dosage: UNKNOWN
  13. APIXABAN [Suspect]
     Active Substance: APIXABAN

REACTIONS (6)
  - Menorrhagia [Unknown]
  - Pulmonary thrombosis [Recovered/Resolved]
  - Asphyxia [Unknown]
  - Product use in unapproved indication [Unknown]
  - Anaemia [Recovered/Resolved]
  - Asthma [Unknown]
